FAERS Safety Report 6113406-X (Version None)
Quarter: 2009Q1

REPORT INFORMATION
  Report Type: 
  Country: None (occurrence: None)
  Receive Date: 20090312
  Receipt Date: 20030703
  Transmission Date: 20090719
  Serious: No
  Sender: FDA-Public Use
  Company Number: US-ABBOTT-08P-163-0457055-00

PATIENT
  Age: 23 Year
  Sex: Female

DRUGS (3)
  1. DEPAKOTE [Suspect]
     Indication: MIGRAINE
  2. ETHANOL [Interacting]
     Indication: DRUG USE FOR UNKNOWN INDICATION
  3. CANNABIS SATIVA [Interacting]
     Indication: DRUG USE FOR UNKNOWN INDICATION

REACTIONS (1)
  - DRUG INTERACTION [None]
